FAERS Safety Report 6125187-4 (Version None)
Quarter: 2009Q1

REPORT INFORMATION
  Report Type: 
  Country: None (occurrence: None)
  Receive Date: 20090317
  Receipt Date: 20090313
  Transmission Date: 20090719
  Serious: Yes (Other)
  Sender: FDA-Public Use
  Company Number: CHPA2009US06364

PATIENT
  Age: 71 Year
  Sex: Female

DRUGS (4)
  1. MAALOX MS TOTAL STOMACH RELIEF (NCH) (BISMUTH SUBSALICYLATE) SUSPENSIO [Suspect]
     Indication: ABDOMINAL INFECTION
     Dosage: 6 TSP, QID, ORAL
     Route: 048
     Dates: start: 20090303, end: 20090304
  2. WARFARIN SODIUM [Suspect]
     Indication: ATRIAL FIBRILLATION
     Dosage: 2.5 MG, QD, ORAL
     Route: 048
  3. ANTIBIOTICS (NO INGREDIENTS/SUBSTANCES) [Concomitant]
  4. MORPHINE [Concomitant]

REACTIONS (3)
  - COAGULATION TIME PROLONGED [None]
  - NERVOUSNESS [None]
  - OCCULT BLOOD POSITIVE [None]
